FAERS Safety Report 7328476-0 (Version None)
Quarter: 2011Q1

REPORT INFORMATION
  Report Type: 
  Country: None (occurrence: None)
  Receive Date: 20110303
  Receipt Date: 20110228
  Transmission Date: 20110831
  Serious: Yes (Other)
  Sender: FDA-Public Use
  Company Number: US-PFIZER INC-2011016913

PATIENT
  Sex: Male
  Weight: 61.224 kg

DRUGS (6)
  1. CHANTIX [Suspect]
     Indication: SMOKING CESSATION THERAPY
     Dosage: 0.5 MG, DAILY
     Route: 048
     Dates: start: 20110120
  2. PHENAZOPYRIDINE [Concomitant]
     Indication: DYSURIA
     Dosage: 100 MG, UNK
  3. CHANTIX [Suspect]
     Dosage: 0.5 MG, 2X/DAY
     Route: 048
     Dates: start: 20110201, end: 20110201
  4. TAMSULOSIN [Concomitant]
     Indication: DYSURIA
     Dosage: UNK
  5. GABAPENTIN [Concomitant]
     Dosage: UNK
  6. IBUPROFEN [Concomitant]
     Dosage: UNK

REACTIONS (4)
  - BACK PAIN [None]
  - DEPRESSION [None]
  - RENAL DISORDER [None]
  - LETHARGY [None]
